FAERS Safety Report 7730151-5 (Version None)
Quarter: 2011Q3

REPORT INFORMATION
  Report Type: 
  Country: None (occurrence: None)
  Receive Date: 20110906
  Receipt Date: 20110829
  Transmission Date: 20111222
  Serious: Yes (Other)
  Sender: FDA-Public Use
  Company Number: PHHY2011CA76300

PATIENT
  Sex: Male

DRUGS (1)
  1. CLOZAPINE [Suspect]
     Indication: SCHIZOPHRENIA
     Dates: start: 20000307

REACTIONS (2)
  - INTENTIONAL SELF-INJURY [None]
  - INTERVERTEBRAL DISC DISPLACEMENT [None]
